FAERS Safety Report 19086935 (Version 2)
Quarter: 2021Q2

REPORT INFORMATION
  Report Type: Spontaneous
  Country: IR (occurrence: IR)
  Receive Date: 20210402
  Receipt Date: 20210412
  Transmission Date: 20210717
  Serious: Yes (Life-Threatening, Hospitalization)
  Sender: FDA-Public Use
  Company Number: IR-PFIZER INC-2021357442

PATIENT
  Age: 23 Year
  Sex: Female

DRUGS (4)
  1. TACROLIMUS. [Suspect]
     Active Substance: TACROLIMUS
     Indication: IMMUNOSUPPRESSANT DRUG THERAPY
     Dosage: 1 MG, DAILY
     Dates: start: 201812
  2. METHYLPREDNISOLONE SODIUM SUCCINATE. [Suspect]
     Active Substance: METHYLPREDNISOLONE SODIUM SUCCINATE
     Indication: TRANSPLANT REJECTION
     Dosage: UNK
  3. PREDNISOLONE. [Suspect]
     Active Substance: PREDNISOLONE
     Indication: IMMUNOSUPPRESSANT DRUG THERAPY
     Dosage: 20 MG, DAILY
     Dates: start: 201812
  4. MYCOPHENOLATE SODIUM [Suspect]
     Active Substance: MYCOPHENOLATE SODIUM
     Indication: IMMUNOSUPPRESSANT DRUG THERAPY
     Dosage: 360 MG, DAILY
     Dates: start: 201812

REACTIONS (1)
  - Pneumonia parainfluenzae viral [Recovered/Resolved]

NARRATIVE: CASE EVENT DATE: 201812
